FAERS Safety Report 17799295 (Version 1)
Quarter: 2020Q2

REPORT INFORMATION
  Report Type: Spontaneous
  Country: US (occurrence: US)
  Receive Date: 20200518
  Receipt Date: 20200518
  Transmission Date: 20200714
  Serious: Yes (Other)
  Sender: FDA-Public Use
  Company Number: US-GILEAD-2020-0467051

PATIENT

DRUGS (1)
  1. ATRIPLA [Suspect]
     Active Substance: EFAVIRENZ\EMTRICITABINE\TENOFOVIR DISOPROXIL FUMARATE
     Indication: PRODUCT USED FOR UNKNOWN INDICATION
     Dosage: UNK
     Route: 048
     Dates: start: 2009, end: 2017

REACTIONS (11)
  - Intervertebral disc protrusion [Unknown]
  - Osteoarthritis [Unknown]
  - Spinal deformity [Unknown]
  - Hip arthroplasty [Unknown]
  - Bone density decreased [Unknown]
  - Chronic kidney disease [Unknown]
  - Tendon disorder [Unknown]
  - Renal failure [Unknown]
  - Musculoskeletal pain [Unknown]
  - Spinal osteoarthritis [Unknown]
  - Renal cyst [Unknown]
